FAERS Safety Report 18339830 (Version 1)
Quarter: 2020Q4

REPORT INFORMATION
  Report Type: Spontaneous
  Country: CA (occurrence: CA)
  Receive Date: 20201002
  Receipt Date: 20201002
  Transmission Date: 20210113
  Serious: Yes (Other)
  Sender: FDA-Public Use
  Company Number: CA-TEVA-2020-CA-1833611

PATIENT
  Age: 63 Year
  Sex: Male

DRUGS (2)
  1. GABAPENTIN. [Suspect]
     Active Substance: GABAPENTIN
     Indication: NEURALGIA
     Route: 048
  2. LORAZEPAM. [Concomitant]
     Active Substance: LORAZEPAM

REACTIONS (2)
  - Swollen tongue [Unknown]
  - Tongue blistering [Unknown]
